FAERS Safety Report 21134101 (Version 4)
Quarter: 2023Q1

REPORT INFORMATION
  Report Type: Report from Study
  Country: US (occurrence: US)
  Receive Date: 20220726
  Receipt Date: 20230330
  Transmission Date: 20230417
  Serious: Yes (Other)
  Sender: FDA-Public Use
  Company Number: US-BRISTOL-MYERS SQUIBB COMPANY-2022-074495

PATIENT
  Age: 35 Year
  Sex: Female

DRUGS (1)
  1. REVLIMID [Suspect]
     Active Substance: LENALIDOMIDE
     Indication: Plasma cell myeloma
     Dosage: 21 DAYS ON AND 7 DAYS OFF EVERY 28 DAYS
     Dates: start: 20201116, end: 20220714

REACTIONS (2)
  - Maternal exposure during pregnancy [Recovered/Resolved]
  - Treatment noncompliance [Unknown]
